FAERS Safety Report 4357269-1 (Version None)
Quarter: 2004Q2

REPORT INFORMATION
  Report Type: 
  Country: None (occurrence: None)
  Receive Date: 20040507
  Receipt Date: 20040416
  Transmission Date: 20050107
  Serious: Yes (Other)
  Sender: FDA-Public Use
  Company Number: USA040465098

PATIENT
  Age: 71 Year
  Sex: Female
  Weight: 70 kg

DRUGS (1)
  1. HUMULIN 70/30 [Suspect]
     Indication: DIABETES MELLITUS
     Dosage: 25 U DAY
     Dates: start: 19940101

REACTIONS (5)
  - DIABETES MELLITUS INADEQUATE CONTROL [None]
  - EYE LASER SURGERY [None]
  - EYE OPERATION COMPLICATION [None]
  - TREMOR [None]
  - VISUAL ACUITY REDUCED [None]
